FAERS Safety Report 7705573-9 (Version None)
Quarter: 2011Q3

REPORT INFORMATION
  Report Type: 
  Country: None (occurrence: None)
  Receive Date: 20110824
  Receipt Date: 20110819
  Transmission Date: 20111222
  Serious: Yes (Hospitalization, Congenital Anomaly, Other)
  Sender: FDA-Public Use
  Company Number: DE-JNJFOC-20110701232

PATIENT
  Sex: Male

DRUGS (3)
  1. TOPAMAX [Suspect]
     Indication: MATERNAL EXPOSURE DURING PREGNANCY
     Route: 064
  2. FOLSAN [Suspect]
     Indication: MATERNAL EXPOSURE DURING PREGNANCY
     Route: 064
  3. TOPAMAX [Suspect]
     Route: 064

REACTIONS (8)
  - OXYGEN SATURATION DECREASED [None]
  - ATRIAL SEPTAL DEFECT [None]
  - APNOEA [None]
  - DRUG WITHDRAWAL SYNDROME NEONATAL [None]
  - CYANOSIS [None]
  - CARDIAC ANEURYSM [None]
  - RESPIRATORY DISORDER [None]
  - CONVULSION NEONATAL [None]
